FAERS Safety Report 4273042-7 (Version None)
Quarter: 2004Q1

REPORT INFORMATION
  Report Type: 
  Country: None (occurrence: None)
  Receive Date: 20040114
  Receipt Date: 20031225
  Transmission Date: 20041129
  Serious: Yes (Hospitalization)
  Sender: FDA-Public Use
  Company Number: DSK-2002-05912

PATIENT
  Age: 79 Year
  Sex: Male

DRUGS (5)
  1. DV-7314 (CLPOPIDOGREL SULFATE) [Suspect]
     Indication: CEREBRAL INFARCTION
     Dosage: 75 MG
     Route: 048
     Dates: start: 20020312, end: 20020807
  2. LANSOPRAZOLE [Concomitant]
  3. NIZATIDINE [Concomitant]
  4. RESPLEN (EPRAZINONE HYDROCHLORIDE) [Concomitant]
  5. CLARITHROMYCIN [Concomitant]

REACTIONS (3)
  - INFECTION [None]
  - PLEURAL EFFUSION [None]
  - PLEURISY [None]
